FAERS Safety Report 8782051 (Version 2)
Quarter: 2012Q4

REPORT INFORMATION
  Report Type: Report from Study
  Country: US (occurrence: US)
  Receive Date: 20120913
  Receipt Date: 20121128
  Transmission Date: 20130627
  Serious: Yes (Other)
  Sender: FDA-Public Use
  Company Number: US-US-EMD SERONO, INC.-7159695

PATIENT
  Sex: Female

DRUGS (2)
  1. REBIF [Suspect]
     Indication: MULTIPLE SCLEROSIS
     Route: 058
     Dates: start: 20100217
  2. ANALGESIC [Concomitant]
     Indication: INFLUENZA LIKE ILLNESS

REACTIONS (9)
  - Basal cell carcinoma [Unknown]
  - Pancreatic enzymes increased [Recovered/Resolved]
  - Rectal haemorrhage [Not Recovered/Not Resolved]
  - Leukoplakia oesophageal [Not Recovered/Not Resolved]
  - Abdominal discomfort [Not Recovered/Not Resolved]
  - Excoriation [Not Recovered/Not Resolved]
  - Balance disorder [Not Recovered/Not Resolved]
  - Chest pain [Unknown]
  - Multiple sclerosis relapse [Recovered/Resolved]
